FAERS Safety Report 21976444 (Version 1)
Quarter: 2023Q1

REPORT INFORMATION
  Report Type: Report from Study
  Country: CA (occurrence: CA)
  Receive Date: 20230210
  Receipt Date: 20230210
  Transmission Date: 20230417
  Serious: Yes (Other)
  Sender: FDA-Public Use
  Company Number: CA-002147023-PHHY2011CA71393

PATIENT
  Age: 54 Year
  Sex: Male

DRUGS (3)
  1. SANDOSTATIN LAR DEPOT [Suspect]
     Active Substance: OCTREOTIDE ACETATE
     Indication: Carcinoid tumour of the small bowel
     Dosage: 30 MG, QMO (EVERY 4 WEEKS)
     Route: 030
     Dates: start: 20110629
  2. SANDOSTATIN LAR DEPOT [Suspect]
     Active Substance: OCTREOTIDE ACETATE
  3. SANDOSTATIN LAR DEPOT [Suspect]
     Active Substance: OCTREOTIDE ACETATE

REACTIONS (28)
  - Malignant neoplasm progression [Unknown]
  - Metastases to liver [Unknown]
  - Cholelithiasis [Unknown]
  - Hepatic steatosis [Unknown]
  - Haematochezia [Unknown]
  - Haemorrhoids [Unknown]
  - Palpitations [Unknown]
  - Muscle spasms [Unknown]
  - Pollakiuria [Recovering/Resolving]
  - Flushing [Unknown]
  - Night sweats [Recovering/Resolving]
  - Hyperhidrosis [Recovering/Resolving]
  - Vertigo [Recovering/Resolving]
  - Vitamin D decreased [Unknown]
  - Hepatomegaly [Unknown]
  - Blood pressure increased [Unknown]
  - Blood pressure systolic increased [Unknown]
  - Respiratory rate increased [Unknown]
  - Heart rate irregular [Unknown]
  - Body temperature decreased [Unknown]
  - Fatigue [Unknown]
  - Blood pressure diastolic increased [Unknown]
  - Nasopharyngitis [Unknown]
  - Influenza [Unknown]
  - Abdominal pain [Recovered/Resolved]
  - Diarrhoea [Recovered/Resolved]
  - Blood bilirubin increased [Unknown]
  - Abdominal distension [Recovering/Resolving]

NARRATIVE: CASE EVENT DATE: 20131114
